FAERS Safety Report 6235606-0 (Version None)
Quarter: 2009Q2

REPORT INFORMATION
  Report Type: 
  Country: None (occurrence: None)
  Receive Date: 20090618
  Receipt Date: 20090615
  Transmission Date: 20091009
  Serious: Yes (Death, Other)
  Sender: FDA-Public Use
  Company Number: US-GILEAD-2009-0021609

PATIENT
  Sex: Male
  Weight: 81.72 kg

DRUGS (17)
  1. LETAIRIS [Suspect]
     Indication: PULMONARY ARTERIAL HYPERTENSION
     Route: 048
     Dates: start: 20090312
  2. LETAIRIS [Suspect]
     Route: 048
     Dates: start: 20080501, end: 20090224
  3. LASIX [Concomitant]
  4. LISINOPRIL [Concomitant]
  5. COZAAR [Concomitant]
  6. COREG [Concomitant]
  7. ADVAIR HFA [Concomitant]
  8. DUONEB [Concomitant]
  9. POTASSIUM CHLORIDE [Concomitant]
  10. CYMBALTA [Concomitant]
  11. NIASPAN ER [Concomitant]
  12. CARAFATE [Concomitant]
  13. CLONAZEPAM [Concomitant]
  14. NEXIUM [Concomitant]
  15. LORTAB [Concomitant]
  16. ALEVE [Concomitant]
  17. VYTORIN [Concomitant]

REACTIONS (3)
  - PNEUMONIA [None]
  - SEPSIS [None]
  - SHOCK [None]
